FAERS Safety Report 4313171-2 (Version None)
Quarter: 2004Q1

REPORT INFORMATION
  Report Type: 
  Country: None (occurrence: None)
  Receive Date: 20040304
  Receipt Date: 20040226
  Transmission Date: 20041129
  Serious: Yes (Disabling, Other)
  Sender: FDA-Public Use
  Company Number: US067937

PATIENT
  Age: 19 Year
  Sex: Male

DRUGS (1)
  1. EPOGEN [Suspect]
     Indication: PRE-EXISTING DISEASE
     Dosage: 40000 U, 1 IN 1 WEEKS
     Dates: start: 20040201

REACTIONS (2)
  - BLINDNESS TRANSIENT [None]
  - VISUAL ACUITY REDUCED [None]
